FAERS Safety Report 6825102-1 (Version None)
Quarter: 2010Q3

REPORT INFORMATION
  Report Type: 
  Country: None (occurrence: None)
  Receive Date: 20100708
  Receipt Date: 20061213
  Transmission Date: 20110219
  Serious: No
  Sender: FDA-Public Use
  Company Number: US-PFIZER INC-2006154239

PATIENT
  Sex: Male
  Weight: 122.47 kg

DRUGS (4)
  1. CHANTIX [Suspect]
     Indication: SMOKING CESSATION THERAPY
     Route: 048
     Dates: start: 20061101
  2. PREVACID [Concomitant]
     Route: 048
  3. BETA BLOCKING AGENTS [Concomitant]
  4. SYNTHROID [Concomitant]
     Route: 048

REACTIONS (1)
  - RASH [None]
